FAERS Safety Report 7487675-8 (Version None)
Quarter: 2011Q2

REPORT INFORMATION
  Report Type: 
  Country: None (occurrence: None)
  Receive Date: 20110518
  Receipt Date: 20110411
  Transmission Date: 20111010
  Serious: Yes (Other)
  Sender: FDA-Public Use
  Company Number: JP-BAYER-2011-019196

PATIENT
  Age: 52 Year
  Sex: Male
  Weight: 88 kg

DRUGS (13)
  1. NEXAVAR [Suspect]
     Dosage: 400 MG, QD
     Route: 048
     Dates: start: 20110214
  2. DOXAZOSIN MESYLATE [Concomitant]
     Indication: HYPERTENSION
     Dosage: DAILY DOSE 4 MG
     Route: 048
     Dates: start: 20100308
  3. LASIX [Concomitant]
     Indication: HYPERTENSION
     Dosage: DAILY DOSE 40 MG
     Route: 048
     Dates: start: 20101018
  4. NOVORAPID [Concomitant]
     Indication: DIABETES MELLITUS
     Dosage: DAILY DOSE 14 U
     Route: 058
     Dates: start: 20091228
  5. LANTUS [Concomitant]
     Indication: DIABETES MELLITUS
     Dosage: DAILY DOSE 4 U
     Route: 058
     Dates: start: 20100607
  6. LASIX [Concomitant]
     Indication: OEDEMA
  7. ALDACTONE [Concomitant]
     Indication: OEDEMA
  8. SUTENT [Concomitant]
     Dosage: DAILY DOSE 37.5 MG
     Route: 048
     Dates: start: 20100115, end: 20101126
  9. NEXAVAR [Suspect]
     Indication: RENAL CELL CARCINOMA
     Dosage: 400 MG, BID
     Route: 048
     Dates: start: 20101211, end: 20110213
  10. CANDESARTAN CILEXETIL [Concomitant]
     Indication: HYPERTENSION
     Dosage: DAILY DOSE 12 MG
     Route: 048
     Dates: start: 20100308
  11. ALDACTONE [Concomitant]
     Indication: HYPERTENSION
     Dosage: DAILY DOSE 50 MG
     Route: 048
     Dates: start: 20101018
  12. ADALAT [Concomitant]
     Indication: HYPERTENSION
     Dosage: DAILY DOSE 40 MG
     Route: 048
     Dates: start: 20100308
  13. THYRADIN [Concomitant]
     Dosage: DAILY DOSE 100 ?G
     Route: 048
     Dates: start: 20100204, end: 20101224

REACTIONS (3)
  - PROTEINURIA [None]
  - HYPOALBUMINAEMIA [None]
  - NEPHROTIC SYNDROME [None]
